FAERS Safety Report 8559836-8 (Version None)
Quarter: 2012Q3

REPORT INFORMATION
  Report Type: 
  Country: None (occurrence: None)
  Receive Date: 20120802
  Receipt Date: 20120725
  Transmission Date: 20120928
  Serious: Yes (Other)
  Sender: FDA-Public Use
  Company Number: JP-VERTEX PHARMACEUTICALS INC.-AE-2012-008906

PATIENT
  Age: 68 Year
  Sex: Female

DRUGS (11)
  1. TELAVIC (TELAPREVIR) [Suspect]
     Indication: HEPATITIS C
     Route: 048
     Dates: start: 20120425, end: 20120523
  2. RIBAVIRIN [Concomitant]
     Route: 048
     Dates: start: 20120607
  3. TELAVIC (TELAPREVIR) [Suspect]
     Route: 048
     Dates: start: 20120524, end: 20120613
  4. AZUNOL GARGLE LIQUID [Concomitant]
     Route: 049
     Dates: start: 20120711
  5. ANTEBATE:OINTMENT [Concomitant]
     Route: 061
  6. LEVOFLOXACIN [Concomitant]
     Route: 048
     Dates: start: 20120502
  7. TELAVIC (TELAPREVIR) [Suspect]
     Route: 048
     Dates: start: 20120614, end: 20120718
  8. RIBAVIRIN [Concomitant]
     Indication: HEPATITIS C
     Route: 048
     Dates: start: 20120425, end: 20120606
  9. PEGINTERFERON ALFA-2B [Concomitant]
     Indication: HEPATITIS C
     Route: 058
     Dates: start: 20120425
  10. ALLOPURINOL [Concomitant]
     Route: 048
     Dates: start: 20120509, end: 20120718
  11. SULFAMETHOXAZOLE AND TRIMETHOPRIM [Concomitant]
     Route: 048
     Dates: start: 20120530

REACTIONS (3)
  - WHITE BLOOD CELL COUNT DECREASED [None]
  - ANAEMIA [None]
  - DECREASED APPETITE [None]
